FAERS Safety Report 10356207 (Version 1)
Quarter: 2014Q3

REPORT INFORMATION
  Report Type: Spontaneous
  Country: US (occurrence: US)
  Receive Date: 20140801
  Receipt Date: 20140801
  Transmission Date: 20150326
  Serious: Yes (Other)
  Sender: FDA-Public Use
  Company Number: US-DRREDDYS-USA/USA/14/0042169

PATIENT
  Age: 43 Year
  Sex: Male

DRUGS (5)
  1. HYDROXYCHLOROQUINE [Interacting]
     Active Substance: HYDROXYCHLOROQUINE
     Indication: Q FEVER
     Route: 065
  2. DOXYCYCLINE. [Concomitant]
     Active Substance: DOXYCYCLINE
     Indication: Q FEVER
     Route: 065
  3. CIPROFLOXACIN. [Suspect]
     Active Substance: CIPROFLOXACIN
     Indication: Q FEVER
     Route: 065
  4. HYDROXYCHLOROQUINE [Interacting]
     Active Substance: HYDROXYCHLOROQUINE
     Route: 065
  5. RIFAMPIN. [Interacting]
     Active Substance: RIFAMPIN
     Indication: Q FEVER
     Route: 065

REACTIONS (2)
  - Drug interaction [Unknown]
  - Acute psychosis [Recovered/Resolved]
